FAERS Safety Report 18158586 (Version 1)
Quarter: 2020Q3

REPORT INFORMATION
  Report Type: Spontaneous
  Country: US (occurrence: US)
  Receive Date: 20200817
  Receipt Date: 20200817
  Transmission Date: 20201103
  Serious: Yes (Death)
  Sender: FDA-Public Use
  Company Number: US-EPIC PHARMA LLC-2020EPC00242

PATIENT
  Age: 43 Year
  Sex: Male

DRUGS (5)
  1. GABAPENTIN. [Suspect]
     Active Substance: GABAPENTIN
     Indication: ALCOHOL WITHDRAWAL SYNDROME
     Dosage: 1 CAPSULES; 3X/DAY, THEN 1 CAPSULE TWICE A DAY, THEN 2 CAPSULES DAILY AT BEDTIME
     Route: 048
  2. IRON MULTIVITAMIN [Concomitant]
     Dosage: 1 TABLETS, 1X/DAY
     Route: 048
  3. PREDNISONE. [Suspect]
     Active Substance: PREDNISONE
     Dosage: 3 TABLETS, 1X/DAY(FOR 28 DAYS WITH TAPER)
     Route: 048
  4. CLONIDINE. [Suspect]
     Active Substance: CLONIDINE
     Indication: ALCOHOL WITHDRAWAL SYNDROME
     Dosage: 2 PATCHES; 0.1 MG/24 HOURS; DISCHARGED WITH 2 PATCHES IN PLACE
     Route: 061
  5. FOLIC ACID. [Concomitant]
     Active Substance: FOLIC ACID
     Dosage: 1 TABLETS, 1X/DAY
     Route: 048

REACTIONS (2)
  - Drug interaction [Fatal]
  - Completed suicide [Fatal]
